FAERS Safety Report 6101331-X (Version None)
Quarter: 2009Q1

REPORT INFORMATION
  Report Type: 
  Country: None (occurrence: None)
  Receive Date: 20090304
  Receipt Date: 20090302
  Transmission Date: 20090719
  Serious: Yes (Hospitalization)
  Sender: FDA-Public Use
  Company Number: US-ELI_LILLY_AND_COMPANY-US200903000402

PATIENT
  Sex: Female
  Weight: 72.562 kg

DRUGS (5)
  1. BYETTA [Suspect]
     Indication: TYPE 2 DIABETES MELLITUS
     Dosage: 5 UG, 2/D
     Route: 058
     Dates: start: 20050101, end: 20070101
  2. BYETTA [Suspect]
     Dosage: 10 UG, 2/D
     Route: 058
     Dates: start: 20070101
  3. ALLOPURINOL [Concomitant]
     Dosage: 150 MG, DAILY (1/D)
     Route: 048
  4. FUROSEMIDE [Concomitant]
     Dosage: 40 MG, EACH MORNING
     Route: 048
  5. SIMVASTATIN [Concomitant]
     Dosage: 20 MG, DAILY (1/D)
     Route: 048
     Dates: start: 20080101

REACTIONS (9)
  - ARTHRITIS [None]
  - CARPAL TUNNEL SYNDROME [None]
  - FALL [None]
  - FINGER DEFORMITY [None]
  - GRIP STRENGTH DECREASED [None]
  - HAND FRACTURE [None]
  - HIP ARTHROPLASTY [None]
  - PAIN IN EXTREMITY [None]
  - PARAESTHESIA [None]
